FAERS Safety Report 20928825 (Version 3)
Quarter: 2022Q4

REPORT INFORMATION
  Report Type: Spontaneous
  Country: US (occurrence: US)
  Receive Date: 20220607
  Receipt Date: 20221207
  Transmission Date: 20230112
  Serious: Yes (Life-Threatening, Hospitalization, Other)
  Sender: FDA-Public Use
  Company Number: US-BRISTOL-MYERS SQUIBB COMPANY-2022-048789

PATIENT
  Age: 62 Year
  Sex: Male
  Weight: 64.86 kg

DRUGS (25)
  1. REVLIMID [Suspect]
     Active Substance: LENALIDOMIDE
     Indication: Plasma cell myeloma
     Route: 048
     Dates: start: 20210430
  2. REVLIMID [Suspect]
     Active Substance: LENALIDOMIDE
     Route: 065
  3. REVLIMID [Suspect]
     Active Substance: LENALIDOMIDE
     Dosage: 25 MG PO DAYS 1-14 OF 3 WEEK CYCLE
     Route: 048
     Dates: start: 20140714
  4. REVLIMID [Suspect]
     Active Substance: LENALIDOMIDE
     Dosage: 20 MG 21 D OUT OF 28
     Route: 065
     Dates: start: 20171130
  5. REVLIMID [Suspect]
     Active Substance: LENALIDOMIDE
     Route: 065
     Dates: start: 20180125
  6. REVLIMID [Suspect]
     Active Substance: LENALIDOMIDE
     Dosage: 1 CAPSULE ORALLY DAILY / DAILY
     Route: 048
  7. DEXAMETHASONE [Suspect]
     Active Substance: DEXAMETHASONE
     Indication: Plasma cell myeloma
     Route: 065
  8. DEXAMETHASONE [Suspect]
     Active Substance: DEXAMETHASONE
     Route: 065
     Dates: start: 20180125
  9. DEXAMETHASONE [Suspect]
     Active Substance: DEXAMETHASONE
     Dosage: TAKE 5 TABLETS (20MG) ORALLY EVERY WEEK
     Route: 048
  10. ZOLEDRONIC ACID [Suspect]
     Active Substance: ZOLEDRONIC ACID
     Indication: Plasma cell myeloma
     Route: 065
     Dates: start: 20140502
  11. BORTEZOMIB [Suspect]
     Active Substance: BORTEZOMIB
     Indication: Plasma cell myeloma
     Route: 065
     Dates: start: 20140506
  12. BORTEZOMIB [Concomitant]
     Active Substance: BORTEZOMIB
     Route: 065
     Dates: start: 20140506
  13. CHOLECALCIFEROL [Concomitant]
     Active Substance: CHOLECALCIFEROL
     Dosage: ORAL 2,000 UNIT CAPSULE 1 CAPSULE(S) PO DAILY
     Route: 048
  14. PEPCID [Concomitant]
     Active Substance: FAMOTIDINE
     Dosage: 20 MG TABLET PRN
  15. PHENAZOPYRIDINE [Concomitant]
     Active Substance: PHENAZOPYRIDINE
     Dosage: ORAL 100 MG TABLET 1 TABLET ORALLY 3 TIMES PER DAY
     Route: 048
  16. VITAMIN B COMPLEX [Concomitant]
     Active Substance: CYANOCOBALAMIN\DEXPANTHENOL\NIACINAMIDE\PYRIDOXINE HYDROCHLORIDE\RIBOFLAVIN 5^-PHOSPHATE SODIUM\THIA
     Dosage: ORAL ER TAB TABLET EXTENDED RELEASE 1 TABLET EXTENDED RELEASE PO QD
     Route: 048
  17. ONDANSETRON [Concomitant]
     Active Substance: ONDANSETRON
     Dosage: 8 MG TABLET, DISINTEGRATING 1 ODT ORALLY EVERY 8 HOURS AS NEEDED
     Route: 048
  18. ATORVASTATIN [Concomitant]
     Active Substance: ATORVASTATIN
     Dosage: 20 MG TABLET 1 TABLET PO QD
     Route: 048
  19. LEVOTHYROXINE [Concomitant]
     Active Substance: LEVOTHYROXINE
     Dosage: TABLET 1 TAB QAM (BEFORE BREAKFAST)
  20. FLOMAX [Concomitant]
     Active Substance: TAMSULOSIN HYDROCHLORIDE
     Dosage: 0.4 MG CAPSULE 1 CAP QD
  21. SOTALOL [Concomitant]
     Active Substance: SOTALOL
     Dosage: 80 MG TABLET TWICE DAILY
     Route: 048
  22. ELIQUIS [Concomitant]
     Active Substance: APIXABAN
     Dosage: 5 MG TABLET TWICE DAILY
     Route: 048
  23. MIRTAZAPINE [Concomitant]
     Active Substance: MIRTAZAPINE
     Dosage: 1 TAB QHS
     Route: 048
  24. AFLURIA NOS [Concomitant]
     Active Substance: INFLUENZA VIRUS VACCINE TRIVALENT TYPE A+B AFLURIA
     Route: 030
  25. CALCIUM CARBONATE [Concomitant]
     Active Substance: CALCIUM CARBONATE
     Dosage: 3 IN 1 DAY
     Route: 048

REACTIONS (25)
  - Cardiac failure congestive [Unknown]
  - Immunodeficiency common variable [Unknown]
  - Pneumonia [Unknown]
  - Arthropathy [Unknown]
  - Selective IgA immunodeficiency [Unknown]
  - Renal failure [Unknown]
  - Anaemia [Unknown]
  - Arterial disorder [Unknown]
  - Upper respiratory tract infection [Unknown]
  - Influenza [Unknown]
  - Weight decreased [Unknown]
  - Hypocalcaemia [Unknown]
  - Pain [Unknown]
  - Nausea [Unknown]
  - Decreased appetite [Unknown]
  - Dyspnoea [Unknown]
  - Diarrhoea [Unknown]
  - Memory impairment [Unknown]
  - Anxiety [Unknown]
  - Depression [Unknown]
  - Hypertension [Unknown]
  - Osteopenia [Unknown]
  - Off label use [Unknown]
  - Hypoparathyroidism [Unknown]
  - Haematological infection [Unknown]

NARRATIVE: CASE EVENT DATE: 20150916
